FAERS Safety Report 5273774-8 (Version None)
Quarter: 2007Q1

REPORT INFORMATION
  Report Type: 
  Country: None (occurrence: None)
  Receive Date: 20070321
  Receipt Date: 20070321
  Transmission Date: 20070707
  Serious: No
  Sender: FDA-Public Use
  Company Number: None

PATIENT
  Age: 56 Year
  Sex: Female
  Weight: 79.38 kg

DRUGS (3)
  1. METHADONE HCL [Suspect]
  2. DARVOCET [Suspect]
  3. NICOTINE [Suspect]

REACTIONS (3)
  - DRUG DEPENDENCE [None]
  - INCORRECT DRUG ADMINISTRATION RATE [None]
  - UNEVALUABLE EVENT [None]
